FAERS Safety Report 5132401-0 (Version None)
Quarter: 2006Q4

REPORT INFORMATION
  Report Type: 
  Country: None (occurrence: None)
  Receive Date: 20061023
  Receipt Date: 20061010
  Transmission Date: 20070319
  Serious: Yes (Hospitalization)
  Sender: FDA-Public Use
  Company Number: PHRM2006FR02810

PATIENT
  Age: 77 Year
  Sex: Female

DRUGS (6)
  1. FORLAX [Concomitant]
     Route: 048
  2. ZOLPIDEM TARTRATE [Concomitant]
     Route: 048
  3. TOPALGIC [Concomitant]
     Route: 048
  4. ATHYMIL [Concomitant]
     Route: 048
  5. EXELON [Suspect]
     Indication: DEMENTIA ALZHEIMER'S TYPE
     Route: 048
     Dates: start: 20060118, end: 20060430
  6. EXELON [Suspect]
     Dates: start: 20060615

REACTIONS (5)
  - ECZEMA [None]
  - EOSINOPHILIA [None]
  - INFLAMMATION [None]
  - RASH GENERALISED [None]
  - TOXIC SKIN ERUPTION [None]
